FAERS Safety Report 9697225 (Version 1)
Quarter: 2013Q4

REPORT INFORMATION
  Report Type: Spontaneous
  Country: US (occurrence: US)
  Receive Date: 20131120
  Receipt Date: 20131120
  Transmission Date: 20140711
  Serious: No
  Sender: FDA-Public Use
  Company Number: US-009507513-1311USA005370

PATIENT
  Sex: Male

DRUGS (5)
  1. PEGINTRON [Suspect]
     Indication: HEPATITIS C
     Dosage: 50 MICROGRAM, QW
     Route: 058
     Dates: start: 2013
  2. OMEGA-3 MARINE TRIGLYCERIDES [Concomitant]
  3. UBIDECARENONE [Concomitant]
  4. IRON (UNSPECIFIED) (+) VITAMINS (UNSPECIFIED) [Concomitant]
  5. ASPIRIN [Concomitant]

REACTIONS (1)
  - Pruritus [Unknown]
